FAERS Safety Report 5801185-2 (Version None)
Quarter: 2008Q3

REPORT INFORMATION
  Report Type: 
  Country: None (occurrence: None)
  Receive Date: 20080707
  Receipt Date: 20080627
  Transmission Date: 20090109
  Serious: Yes (Other)
  Sender: FDA-Public Use
  Company Number: AU-ELI_LILLY_AND_COMPANY-AU200807000006

PATIENT
  Sex: Female

DRUGS (3)
  1. ZYPREXA [Suspect]
     Dosage: 20 MG, UNK
     Route: 030
  2. ZUCLOPENTHIXOL DECANOATE [Concomitant]
     Dosage: UNK, UNKNOWN
     Route: 030
  3. ANTIPSYCHOTICS [Concomitant]
     Route: 048

REACTIONS (5)
  - CARDIAC DISORDER [None]
  - LOSS OF CONSCIOUSNESS [None]
  - LUNG DISORDER [None]
  - OVERDOSE [None]
  - PULMONARY EMBOLISM [None]
